FAERS Safety Report 5204692-9 (Version None)
Quarter: 2007Q1

REPORT INFORMATION
  Report Type: 
  Country: None (occurrence: None)
  Receive Date: 20070110
  Receipt Date: 20060616
  Transmission Date: 20070707
  Serious: No
  Sender: FDA-Public Use
  Company Number: US-BRISTOL-MYERS SQUIBB COMPANY-13414958

PATIENT
  Sex: Female

DRUGS (2)
  1. ABILIFY [Suspect]
     Indication: HALLUCINATION
     Route: 048
     Dates: start: 20060609
  2. ZOLOFT [Concomitant]

REACTIONS (2)
  - PSYCHOMOTOR HYPERACTIVITY [None]
  - SOMNOLENCE [None]
